FAERS Safety Report 16908419 (Version 1)
Quarter: 2019Q4

REPORT INFORMATION
  Report Type: Spontaneous
  Country: US (occurrence: US)
  Receive Date: 20190820
  Receipt Date: 20190820
  Transmission Date: 20200122
  Serious: No
  Sender: FDA-Public Use
  Company Number: None

PATIENT
  Age: 48 Year
  Sex: Male

DRUGS (1)
  1. NEXAVAR [Suspect]
     Active Substance: SORAFENIB
     Indication: HEPATOCELLULAR CARCINOMA
     Route: 048
     Dates: start: 20190718, end: 20190802

REACTIONS (6)
  - Diarrhoea [None]
  - Abdominal pain [None]
  - Skin exfoliation [None]
  - Therapy cessation [None]
  - Blister [None]
  - Arthralgia [None]

NARRATIVE: CASE EVENT DATE: 20190802
